FAERS Safety Report 17927774 (Version 1)
Quarter: 2020Q2

REPORT INFORMATION
  Report Type: Spontaneous
  Country: US (occurrence: US)
  Receive Date: 20200623
  Receipt Date: 20200623
  Transmission Date: 20200714
  Serious: No
  Sender: FDA-Public Use
  Company Number: US-GW PHARMA-202006USGW02183

PATIENT

DRUGS (1)
  1. EPIDIOLEX [Suspect]
     Active Substance: CANNABIDIOL
     Indication: LENNOX-GASTAUT SYNDROME
     Dosage: 140 MILLIGRAM, BID
     Route: 048
     Dates: start: 20200403, end: 2020

REACTIONS (1)
  - Decreased appetite [Unknown]

NARRATIVE: CASE EVENT DATE: 2020
